FAERS Safety Report 8404110-3 (Version None)
Quarter: 2012Q2

REPORT INFORMATION
  Report Type: 
  Country: None (occurrence: None)
  Receive Date: 20120601
  Receipt Date: 20120529
  Transmission Date: 20120825
  Serious: Yes (Other)
  Sender: FDA-Public Use
  Company Number: PHHY2012CH045851

PATIENT
  Age: 46 Year
  Sex: Female

DRUGS (2)
  1. TRIAMCINOLONE [Suspect]
     Dosage: 30 MG, QMO
     Route: 030
  2. TOCILIZUMAB [Suspect]
     Dosage: 560 MG, BIW

REACTIONS (10)
  - PERIPHERAL COLDNESS [None]
  - LOW DENSITY LIPOPROTEIN INCREASED [None]
  - INTERMITTENT CLAUDICATION [None]
  - PULSE ABSENT [None]
  - PERIPHERAL ISCHAEMIA [None]
  - PERIPHERAL ARTERIAL OCCLUSIVE DISEASE [None]
  - LEUKOCYTOSIS [None]
  - SKIN LESION [None]
  - PAIN IN EXTREMITY [None]
  - INTERLEUKIN LEVEL INCREASED [None]
